FAERS Safety Report 12690214 (Version 1)
Quarter: 2016Q3

REPORT INFORMATION
  Report Type: Other
  Country: PL (occurrence: PL)
  Receive Date: 20160826
  Receipt Date: 20160826
  Transmission Date: 20161109
  Serious: Yes (Hospitalization)
  Sender: FDA-Public Use
  Company Number: PL-MEDAC PHARMA, INC.-1056775

PATIENT
  Age: 57 Year
  Sex: Female

DRUGS (6)
  1. METHYLPREDNISOLONE. [Suspect]
     Active Substance: METHYLPREDNISOLONE
  2. CERTOLIZUMAB [Suspect]
     Active Substance: CERTOLIZUMAB
     Dates: start: 201306
  3. AZATHIOPRINE. [Suspect]
     Active Substance: AZATHIOPRINE
  4. CYCLOSPORINE. [Suspect]
     Active Substance: CYCLOSPORINE
  5. METHOTREXATE. [Suspect]
     Active Substance: METHOTREXATE
     Indication: RHEUMATOID ARTHRITIS
  6. CYCLOPHOSPHAMIDE. [Suspect]
     Active Substance: CYCLOPHOSPHAMIDE
     Route: 042

REACTIONS (1)
  - Kaposi^s sarcoma [Recovering/Resolving]
